FAERS Safety Report 9645360 (Version 1)
Quarter: 2013Q4

REPORT INFORMATION
  Report Type: Spontaneous
  Country: TH (occurrence: TH)
  Receive Date: 20131025
  Receipt Date: 20131025
  Transmission Date: 20140711
  Serious: Yes (Other)
  Sender: FDA-Public Use
  Company Number: TH-TEVA-438787ISR

PATIENT
  Age: 59 Year
  Sex: Female

DRUGS (7)
  1. CARBOPLATIN [Suspect]
     Indication: GESTATIONAL TROPHOBLASTIC TUMOUR
     Dosage: FIRST INTERVAL: 2 CYCLES
     Route: 065
  2. ETOPOSIDE [Suspect]
     Indication: GESTATIONAL TROPHOBLASTIC TUMOUR
     Dosage: FIRST INTERVAL: 14 COURSES; EMA-CO CHEMOTHERAPY
     Route: 065
  3. METHOTREXATE [Suspect]
     Indication: GESTATIONAL TROPHOBLASTIC TUMOUR
     Dosage: FIRST INTERVAL: 14 COURSES; EMA-CO CHEMOTHERAPY
     Route: 065
  4. VINCRISTINE [Suspect]
     Indication: GESTATIONAL TROPHOBLASTIC TUMOUR
     Dosage: FIRST INTERVAL: 14 COURSES; EMA-CO CHEMOTHERAPY
     Route: 065
  5. DACTINOMYCIN [Suspect]
     Indication: GESTATIONAL TROPHOBLASTIC TUMOUR
     Dosage: FIRST INTERVAL: 14 COURSES; EMA-CO CHEMOTHERAPY
     Route: 065
  6. CYCLOPHOSPHAMIDE [Suspect]
     Indication: GESTATIONAL TROPHOBLASTIC TUMOUR
     Dosage: FIRST INTERVAL: 14 COURSES; EMA-CO CHEMOTHERAPY
     Route: 065
  7. PACLITAXEL [Concomitant]
     Indication: GESTATIONAL TROPHOBLASTIC TUMOUR
     Dosage: FIRST INTERVAL: 2 CYCLES
     Route: 065

REACTIONS (3)
  - Drug hypersensitivity [Unknown]
  - Thrombocytopenia [Unknown]
  - Hepatitis [Unknown]
